FAERS Safety Report 20617489 (Version 1)
Quarter: 2022Q1

REPORT INFORMATION
  Report Type: Report from Study
  Country: GB (occurrence: GB)
  Receive Date: 20220321
  Receipt Date: 20220321
  Transmission Date: 20220423
  Serious: Yes (Other)
  Sender: FDA-Public Use
  Company Number: GB-NOVARTISPH-NVSC2022GB059495

PATIENT
  Age: 41 Year
  Sex: Female

DRUGS (2)
  1. COSENTYX [Suspect]
     Active Substance: SECUKINUMAB
     Indication: Psoriatic arthropathy
     Dosage: 300 MG, QMO
     Route: 058
     Dates: start: 2020
  2. COSENTYX [Suspect]
     Active Substance: SECUKINUMAB
     Dosage: 300 MG, QMO (TWO PENS)
     Route: 058

REACTIONS (8)
  - Condition aggravated [Unknown]
  - Malaise [Unknown]
  - Device defective [Unknown]
  - Infection [Unknown]
  - COVID-19 [Unknown]
  - Device lead issue [Unknown]
  - Product dose omission issue [Unknown]
  - Incorrect dose administered [Unknown]
